FAERS Safety Report 8876984 (Version 2)
Quarter: 2013Q1

REPORT INFORMATION
  Report Type: Spontaneous
  Country: US (occurrence: None)
  Receive Date: 20121024
  Receipt Date: 20121226
  Transmission Date: 20140127
  Serious: Yes (Hospitalization, Other)
  Sender: FDA-Public Use
  Company Number: LMI-2012-00336

PATIENT
  Age: 80 Year
  Sex: Male

DRUGS (9)
  1. ABLAVAR [Suspect]
     Indication: ANGIOGRAM
     Route: 042
     Dates: start: 20121008, end: 20121008
  2. GUAIFENESIN ER (GUAIFENESIN) [Concomitant]
  3. SIMVASTATIN (SIMVASTATIN) [Concomitant]
  4. ASPIRIN (ACETYLSALICYLIC ACID) [Concomitant]
  5. FISH OIL CONCENTRATE (FISH OIL) [Concomitant]
  6. VITAMIN MULTIPLE (ERGOCALCIFEROL, ASCORBIC ACID, PYRIDOXINE HYDROCHLORIDE, THIAMINE HYDROCHLORIDE, RETINOL, RIBOFLAVIN, NICOTINAMIDE, CALCIUM PANTHOTHENATE) [Concomitant]
  7. ASCORBIC ACID (ASCORBIC ACID) [Concomitant]
  8. CHOLECALCIFEROL (COLECALCIFEROL) [Concomitant]
  9. ACETAMINOPHEN (PARACETAMOL) [Concomitant]

REACTIONS (10)
  - Dyspnoea [None]
  - Atrial fibrillation [None]
  - Feeling hot [None]
  - Labile blood pressure [None]
  - Hyperhidrosis [None]
  - Sinus tachycardia [None]
  - Ventricular extrasystoles [None]
  - Electrocardiogram ST segment depression [None]
  - Leukocytosis [None]
  - Extrasystoles [None]
